FAERS Safety Report 12809841 (Version 1)
Quarter: 2016Q4

REPORT INFORMATION
  Report Type: Spontaneous
  Country: US (occurrence: US)
  Receive Date: 20161005
  Receipt Date: 20161005
  Transmission Date: 20170207
  Serious: Yes (Other)
  Sender: FDA-Public Use
  Company Number: US-ADAREPHARM-2016-US-000037

PATIENT
  Sex: Female

DRUGS (1)
  1. KCL [Suspect]
     Active Substance: POTASSIUM CHLORIDE

REACTIONS (5)
  - Product solubility abnormal [Unknown]
  - Wrong technique in product usage process [Unknown]
  - Incorrect product storage [Unknown]
  - Constipation [Unknown]
  - Rectal haemorrhage [Unknown]
